FAERS Safety Report 7250394-7 (Version None)
Quarter: 2011Q1

REPORT INFORMATION
  Report Type: 
  Country: None (occurrence: None)
  Receive Date: 20110128
  Receipt Date: 20110118
  Transmission Date: 20110831
  Serious: Yes (Other)
  Sender: FDA-Public Use
  Company Number: CN-ROCHE-736720

PATIENT

DRUGS (2)
  1. OXALIPLATIN [Suspect]
     Indication: GASTRIC CANCER
     Dosage: 2 HOUR INFUSION ON DAY 1, EVERY 3 WEEKS.
     Route: 041
  2. CAPECITABINE [Suspect]
     Indication: GASTRIC CANCER
     Dosage: TWICE DAILY ON DAYS 1-14 EVERY 3 WEEKS
     Route: 048

REACTIONS (18)
  - ALEUKAEMIC LEUKAEMIA [None]
  - VOMITING [None]
  - CONSTIPATION [None]
  - TRANSAMINASES INCREASED [None]
  - PROTEINURIA [None]
  - ASTHENIA [None]
  - FEBRILE NEUTROPENIA [None]
  - DIARRHOEA [None]
  - STOMATITIS [None]
  - BLOOD BILIRUBIN INCREASED [None]
  - NEUTROPENIA [None]
  - NAUSEA [None]
  - NEUROPATHY PERIPHERAL [None]
  - THROMBOCYTOPENIA [None]
  - ABDOMINAL PAIN [None]
  - MYALGIA [None]
  - ANAEMIA [None]
  - PALMAR-PLANTAR ERYTHRODYSAESTHESIA SYNDROME [None]
